FAERS Safety Report 6632420-9 (Version None)
Quarter: 2010Q1

REPORT INFORMATION
  Report Type: 
  Country: None (occurrence: None)
  Receive Date: 20100312
  Receipt Date: 20090605
  Transmission Date: 20100710
  Serious: Yes (Hospitalization)
  Sender: FDA-Public Use
  Company Number: 2008BI011948

PATIENT
  Age: 42 Year
  Sex: Female
  Weight: 130 kg

DRUGS (2)
  1. AVONEX [Suspect]
     Indication: MULTIPLE SCLEROSIS
     Route: 030
     Dates: start: 20070501, end: 20080401
  2. AVONEX [Suspect]
     Route: 030
     Dates: start: 20080701, end: 20080901

REACTIONS (1)
  - MULTIPLE SCLEROSIS RELAPSE [None]
